FAERS Safety Report 24332065 (Version 1)
Quarter: 2024Q3

REPORT INFORMATION
  Report Type: Other
  Country: US (occurrence: US)
  Receive Date: 20240918
  Receipt Date: 20240918
  Transmission Date: 20241017
  Serious: Yes (Other)
  Sender: PL DEVELOPMENTS
  Company Number: US-P+L Developments of Newyork Corporation-2161745

PATIENT
  Age: 69 Year
  Sex: Male

DRUGS (5)
  1. IBUPROFEN [Suspect]
     Active Substance: IBUPROFEN
     Indication: Lung adenocarcinoma stage IV
  2. ACETAMINOPHEN [Suspect]
     Active Substance: ACETAMINOPHEN
  3. LEVOFLOXACIN [Suspect]
     Active Substance: LEVOFLOXACIN
  4. PEMBROLIZUMAB [Suspect]
     Active Substance: PEMBROLIZUMAB
  5. PANTOPRAZOLE SODIUM [Suspect]
     Active Substance: PANTOPRAZOLE SODIUM

REACTIONS (3)
  - Renal tubular necrosis [Not Recovered/Not Resolved]
  - Arteriosclerosis [Not Recovered/Not Resolved]
  - Tubulointerstitial nephritis [Not Recovered/Not Resolved]
